FAERS Safety Report 21930996 (Version 1)
Quarter: 2023Q1

REPORT INFORMATION
  Report Type: Spontaneous
  Country: US (occurrence: None)
  Receive Date: 20230130
  Receipt Date: 20230130
  Transmission Date: 20230418
  Serious: Yes (Hospitalization)
  Sender: FDA-Public Use
  Company Number: None

PATIENT
  Age: 84 Year
  Sex: Male
  Weight: 90 kg

DRUGS (3)
  1. APIXABAN [Suspect]
     Active Substance: APIXABAN
     Indication: Atrial fibrillation
     Dosage: 5 MG BID PO?
     Route: 048
     Dates: start: 20190320, end: 20220715
  2. APIXABAN [Suspect]
     Active Substance: APIXABAN
     Indication: Deep vein thrombosis
  3. ASPIRIN [Suspect]
     Active Substance: ASPIRIN
     Indication: Stent placement
     Dosage: 81 MG EVERY DAY PO?
     Route: 048
     Dates: start: 20210813

REACTIONS (6)
  - Dizziness [None]
  - Haemorrhage [None]
  - Anaemia [None]
  - Nausea [None]
  - Vomiting [None]
  - Gastric haemorrhage [None]

NARRATIVE: CASE EVENT DATE: 20220716
